FAERS Safety Report 4907282-8 (Version None)
Quarter: 2006Q1

REPORT INFORMATION
  Report Type: 
  Country: None (occurrence: None)
  Receive Date: 20060207
  Receipt Date: 20060127
  Transmission Date: 20060701
  Serious: Yes (Hospitalization, Other)
  Sender: FDA-Public Use
  Company Number: 2006003941

PATIENT
  Age: 38 Year
  Sex: Male
  Weight: 145.151 kg

DRUGS (7)
  1. ACCUPRIL [Suspect]
     Indication: HYPERTENSION
     Dosage: 20 MG (20 MG, 1 IN 1 D), ORAL
     Route: 048
     Dates: start: 20020730, end: 20050104
  2. ALLOPURINOL [Concomitant]
  3. PROBENECID [Concomitant]
  4. HYDRALAZINE HCL [Concomitant]
  5. LISINOPRIL [Concomitant]
  6. ANTIVERT (MECLOZINE HYDROCHLORIDE) [Concomitant]
  7. PHENERGAN [Concomitant]

REACTIONS (6)
  - BRAIN STEM INFARCTION [None]
  - CEREBROVASCULAR ACCIDENT [None]
  - DRUG INEFFECTIVE [None]
  - NASOPHARYNGITIS [None]
  - RENAL COLIC [None]
  - VERTIGO [None]
